FAERS Safety Report 7164763-7 (Version None)
Quarter: 2010Q4

REPORT INFORMATION
  Report Type: 
  Country: None (occurrence: None)
  Receive Date: 20101215
  Receipt Date: 20101209
  Transmission Date: 20110411
  Serious: Yes (Hospitalization)
  Sender: FDA-Public Use
  Company Number: JP-ABBOTT-08P-087-0491142-00

PATIENT
  Age: 62 Year
  Sex: Female

DRUGS (14)
  1. LOPINAVIR/RITONAVIR [Suspect]
     Indication: HIV INFECTION
     Dosage: NOT REPORTED
     Dates: start: 20070601, end: 20080501
  2. STAVUDINE [Concomitant]
     Indication: HIV INFECTION
     Dosage: NOT REPORTED
     Dates: start: 20070601, end: 20070901
  3. LAMIVUDINE [Concomitant]
     Indication: HIV INFECTION
     Dosage: NOT REPORTED
     Dates: start: 20070601
  4. LAMIVUDINE [Concomitant]
     Dosage: NOT REPORTED
     Dates: start: 20070101
  5. ABACAVIR [Concomitant]
     Indication: HIV INFECTION
     Dosage: NOT REPORTED
     Dates: start: 20070901
  6. ABACAVIR [Concomitant]
     Dates: start: 20070101
  7. DARUNAVIR [Concomitant]
     Indication: HIV INFECTION
     Dosage: NOT REPORTED
     Dates: start: 20070101
  8. RITONAVIR [Concomitant]
     Indication: HIV INFECTION
     Dosage: NOT REPORTED
     Dates: start: 20070101
  9. BISPHOSPHONATES [Concomitant]
     Indication: OSTEOPOROSIS
     Dosage: NOT REPORTED
     Dates: start: 20080201
  10. BISPHOSPHONATES [Concomitant]
     Indication: COMPRESSION FRACTURE
  11. NSAIDS [Concomitant]
     Indication: OSTEOPOROSIS
     Dosage: NOT REPORTED
     Dates: start: 20080201
  12. NSAIDS [Concomitant]
     Indication: COMPRESSION FRACTURE
  13. CALCIUM ANTAGONIST [Concomitant]
     Indication: PRODUCT USED FOR UNKNOWN INDICATION
     Dates: start: 20071001
  14. STATIN [Concomitant]
     Indication: PRODUCT USED FOR UNKNOWN INDICATION
     Dates: start: 20071001

REACTIONS (5)
  - DECREASED APPETITE [None]
  - DUODENAL ULCER [None]
  - GASTRIC ULCER [None]
  - NAUSEA [None]
  - VOMITING [None]
